FAERS Safety Report 5502006-8 (Version None)
Quarter: 2007Q4

REPORT INFORMATION
  Report Type: 
  Country: None (occurrence: None)
  Receive Date: 20071030
  Receipt Date: 20071025
  Transmission Date: 20080405
  Serious: Yes (Hospitalization)
  Sender: FDA-Public Use
  Company Number: B0492607A

PATIENT
  Age: 53 Year
  Sex: Male
  Weight: 64 kg

DRUGS (7)
  1. ARIXTRA [Suspect]
     Indication: DRUG USE FOR UNKNOWN INDICATION
     Dosage: 2.5MG PER DAY
     Route: 058
     Dates: start: 20070921, end: 20070925
  2. BLOPRESS [Concomitant]
     Route: 048
  3. NIFEDIPINE [Concomitant]
     Route: 048
  4. MOBIC [Concomitant]
     Route: 048
  5. UNKNOWN DRUG [Concomitant]
     Route: 048
  6. PANTOSIN [Concomitant]
     Route: 065
  7. MAGNESIUM OXIDE [Concomitant]
     Route: 048

REACTIONS (2)
  - COLITIS ULCERATIVE [None]
  - MELAENA [None]
